FAERS Safety Report 9848923 (Version 1)
Quarter: 2013Q4

REPORT INFORMATION
  Report Type: Spontaneous
  Country: US (occurrence: None)
  Receive Date: 20131224
  Receipt Date: 20131224
  Transmission Date: 20140711
  Serious: Yes (Other)
  Sender: FDA-Public Use
  Company Number: PHEH2012US022089

PATIENT
  Sex: Male

DRUGS (1)
  1. MYFORTIC [Suspect]
     Route: 048
     Dates: start: 20051101

REACTIONS (1)
  - Meningitis [None]
